FAERS Safety Report 6539575-5 (Version None)
Quarter: 2010Q1

REPORT INFORMATION
  Report Type: 
  Country: None (occurrence: None)
  Receive Date: 20100112
  Receipt Date: 20091229
  Transmission Date: 20100710
  Serious: Yes (Hospitalization, Other)
  Sender: FDA-Public Use
  Company Number: MOZO-1000289

PATIENT
  Age: 63 Year
  Sex: Male
  Weight: 85.2 kg

DRUGS (22)
  1. MOZOBIL [Suspect]
     Indication: ACUTE MYELOID LEUKAEMIA
     Dosage: 6400 MCG, QD
     Dates: start: 20090812, end: 20090815
  2. MOZOBIL [Suspect]
     Indication: HAEMATOPOIETIC STEM CELL MOBILISATION
     Dosage: 6400 MCG, QD
     Dates: start: 20090812, end: 20090815
  3. THYMOGLOBULIN [Concomitant]
  4. GRANULOCYTE COLONY STIMULATING FACTOR [Concomitant]
  5. FLUDARABINE PHOSPHATE [Concomitant]
  6. BUSULFAN (BUSULFAN) [Concomitant]
  7. AMBIEN [Concomitant]
  8. ATIVAN [Concomitant]
  9. BACLOFEN [Concomitant]
  10. COMPAZINE [Concomitant]
  11. LEVETIRACETAM [Concomitant]
  12. MEGESTROL ACETATE [Concomitant]
  13. METOPROLOL (METOPROLOL) [Concomitant]
  14. METRONIDAZOLE [Concomitant]
  15. NEXIAM (ESOMEPRAZOLE) [Concomitant]
  16. PAROXETINE HCL [Concomitant]
  17. PENTAMIDINE (PENTAMIDINE) [Concomitant]
  18. PROPOXYPHENE HCL [Concomitant]
  19. TACROLIMUS [Concomitant]
  20. TOLTERODINE TARTRATE [Concomitant]
  21. VALTREX [Concomitant]
  22. VFEND [Concomitant]

REACTIONS (9)
  - ATELECTASIS [None]
  - BK VIRUS INFECTION [None]
  - CLOSTRIDIAL INFECTION [None]
  - ENCEPHALOPATHY [None]
  - HYPERTENSION [None]
  - ORTHOSTATIC HYPOTENSION [None]
  - PNEUMONIA [None]
  - PULMONARY OEDEMA [None]
  - RENAL FAILURE [None]
